FAERS Safety Report 9495907 (Version 1)
Quarter: 2013Q3

REPORT INFORMATION
  Report Type: Other
  Country: FR (occurrence: FR)
  Receive Date: 20130903
  Receipt Date: 20130903
  Transmission Date: 20140515
  Serious: Yes (Other)
  Sender: FDA-Public Use
  Company Number: FR-RB-057919-13

PATIENT
  Age: 43 Year
  Sex: Male

DRUGS (3)
  1. BUPRENORPHINE UNSPECIFIED [Suspect]
     Dosage: DOSING DETAILS UNKNOWN
     Route: 065
  2. BUPRENORPHINE UNSPECIFIED [Suspect]
     Indication: PRODUCT USED FOR UNKNOWN INDICATION
     Dosage: DOSING DETAILS UNKNOWN
     Route: 045
  3. DELTA-9-TETRAHYDROCANNABINOL [Concomitant]
     Indication: PRODUCT USED FOR UNKNOWN INDICATION
     Dosage: DOSING DETAILS UNKNOWN
     Route: 065

REACTIONS (3)
  - Wrong technique in drug usage process [Unknown]
  - Intentional drug misuse [Unknown]
  - Linear IgA disease [Unknown]
